FAERS Safety Report 25493237 (Version 1)
Quarter: 2025Q2

REPORT INFORMATION
  Report Type: Report from Study
  Country: CL (occurrence: CL)
  Receive Date: 20250630
  Receipt Date: 20250630
  Transmission Date: 20250716
  Serious: Yes (Hospitalization, Other)
  Sender: BRISTOL-MYERS SQUIBB COMPANY
  Company Number: CL-BRISTOL-MYERS SQUIBB COMPANY-2025-090223

PATIENT
  Age: 77 Year
  Sex: Female

DRUGS (2)
  1. OPDIVO [Suspect]
     Active Substance: NIVOLUMAB
     Indication: Malignant melanoma
     Route: 042
  2. YERVOY [Suspect]
     Active Substance: IPILIMUMAB
     Indication: Malignant melanoma
     Route: 042

REACTIONS (5)
  - Stevens-Johnson syndrome [Recovered/Resolved with Sequelae]
  - Thrombosis [Unknown]
  - Adrenal disorder [Unknown]
  - Thyroid disorder [Unknown]
  - Spinal disorder [Unknown]

NARRATIVE: CASE EVENT DATE: 20241023
